FAERS Safety Report 7544010-4 (Version None)
Quarter: 2011Q2

REPORT INFORMATION
  Report Type: 
  Country: None (occurrence: None)
  Receive Date: 20110613
  Receipt Date: 20040929
  Transmission Date: 20111010
  Serious: Yes (Hospitalization)
  Sender: FDA-Public Use
  Company Number: PHHO2004JP11268

PATIENT
  Sex: Male
  Weight: 57 kg

DRUGS (4)
  1. BUFFERIN [Concomitant]
     Indication: ANGINA PECTORIS
     Dates: end: 20030718
  2. DIOVAN [Suspect]
     Indication: HYPERTENSION
     Dosage: 80 MG, QD
     Route: 048
     Dates: start: 20030626, end: 20030718
  3. NORVASC [Concomitant]
     Indication: HYPERTENSION
     Dosage: 5 MG, UNK
     Dates: end: 20030718
  4. AMIODARONE HYDROCHLORIDE [Concomitant]
     Indication: VENTRICULAR TACHYCARDIA
     Dates: start: 20030617, end: 20030718

REACTIONS (1)
  - VENTRICULAR TACHYCARDIA [None]
